FAERS Safety Report 7803366-5 (Version None)
Quarter: 2011Q4

REPORT INFORMATION
  Report Type: 
  Country: None (occurrence: None)
  Receive Date: 20111007
  Receipt Date: 20111005
  Transmission Date: 20120403
  Serious: Yes (Life-Threatening)
  Sender: FDA-Public Use
  Company Number: US-BAYER-2011-064822

PATIENT
  Age: 47 Year
  Sex: Female

DRUGS (1)
  1. MAGNEVIST [Suspect]
     Indication: NUCLEAR MAGNETIC RESONANCE IMAGING BRAIN
     Dosage: 18 ML, ONCE
     Route: 042
     Dates: start: 20110614, end: 20110614

REACTIONS (6)
  - SWELLING FACE [None]
  - OBSTRUCTIVE AIRWAYS DISORDER [None]
  - RESTLESSNESS [None]
  - FEELING ABNORMAL [None]
  - ANAPHYLACTIC REACTION [None]
  - PERIORBITAL OEDEMA [None]
